FAERS Safety Report 9110204 (Version 13)
Quarter: 2014Q2

REPORT INFORMATION
  Report Type: Spontaneous
  Country: US (occurrence: US)
  Receive Date: 20130222
  Receipt Date: 20140612
  Transmission Date: 20141212
  Serious: Yes (Hospitalization, Other)
  Sender: FDA-Public Use
  Company Number: US-JNJFOC-20130205305

PATIENT
  Age: 42 Year
  Sex: Female
  Weight: 89.81 kg

DRUGS (10)
  1. EXTRA STRENGTH TYLENOL [Suspect]
     Indication: PYREXIA
     Route: 048
     Dates: start: 20110330, end: 20110404
  2. EXTRA STRENGTH TYLENOL [Suspect]
     Indication: PAIN
     Route: 048
     Dates: start: 20110330, end: 20110404
  3. IBUPROFEN [Suspect]
     Indication: PRODUCT USED FOR UNKNOWN INDICATION
     Route: 065
     Dates: start: 20110404
  4. TYLENOL COLD [Suspect]
     Indication: PYREXIA
     Route: 065
     Dates: start: 20110330, end: 20110404
  5. TYLENOL COLD [Suspect]
     Indication: NASOPHARYNGITIS
     Route: 065
     Dates: start: 20110330, end: 20110404
  6. LORCET [Suspect]
     Indication: BACK PAIN
     Route: 048
     Dates: start: 2000
  7. ZYRTEC [Concomitant]
     Indication: MULTIPLE ALLERGIES
     Route: 065
     Dates: start: 2000
  8. GABAPENTIN [Concomitant]
     Indication: BACK PAIN
     Route: 065
     Dates: start: 2000
  9. CARISOPRODOL [Concomitant]
     Indication: BACK PAIN
     Route: 065
     Dates: start: 2000
  10. CARISOPRODOL [Concomitant]
     Indication: MUSCLE RELAXANT THERAPY
     Route: 065
     Dates: start: 2000

REACTIONS (4)
  - Depression [Unknown]
  - Acute hepatic failure [Recovered/Resolved]
  - Liver injury [Unknown]
  - Anxiety [Unknown]
